FAERS Safety Report 23766098 (Version 1)
Quarter: 2024Q2

REPORT INFORMATION
  Report Type: Spontaneous
  Country: GB (occurrence: GB)
  Receive Date: 20240421
  Receipt Date: 20240421
  Transmission Date: 20240716
  Serious: Yes (Hospitalization)
  Sender: FDA-Public Use
  Company Number: None

PATIENT
  Age: 66 Year
  Sex: Male

DRUGS (1)
  1. RIVAROXABAN [Suspect]
     Active Substance: RIVAROXABAN
     Indication: Acute coronary syndrome
     Dosage: 2.5 MG, BID
     Route: 048
     Dates: start: 20240301

REACTIONS (3)
  - Hepatitis acute [Unknown]
  - Malaise [Unknown]
  - Jaundice [Unknown]
